FAERS Safety Report 5989561-9 (Version None)
Quarter: 2008Q4

REPORT INFORMATION
  Report Type: 
  Country: None (occurrence: None)
  Receive Date: 20081208
  Receipt Date: 20081125
  Transmission Date: 20090506
  Serious: Yes (Other)
  Sender: FDA-Public Use
  Company Number: 2008-03555

PATIENT

DRUGS (1)
  1. VELCADE [Suspect]
     Dosage: 1.3 MG/M2, INTRAVNEOUS
     Route: 042

REACTIONS (1)
  - CYTOMEGALOVIRUS INFECTION [None]
